FAERS Safety Report 6045052-0 (Version None)
Quarter: 2009Q1

REPORT INFORMATION
  Report Type: 
  Country: None (occurrence: None)
  Receive Date: 20090121
  Receipt Date: 20090119
  Transmission Date: 20090719
  Serious: Yes (Hospitalization)
  Sender: FDA-Public Use
  Company Number: DE-WYE-G02957909

PATIENT
  Sex: Male
  Weight: 70 kg

DRUGS (3)
  1. TREVILOR RETARD [Suspect]
     Dosage: 6 CAPSULES (OVERDOSE AMOUNT 900 MG)
     Route: 048
     Dates: start: 20090116, end: 20090116
  2. TREVILOR RETARD [Suspect]
     Dosage: UNKNOWN
     Route: 048
  3. PROMETHAZINE [Suspect]
     Dosage: 6 TABLETS (OVERDOSE AMOUNT 150 MG)
     Route: 048
     Dates: start: 20090116, end: 20090116

REACTIONS (2)
  - DRUG ABUSE [None]
  - INTENTIONAL OVERDOSE [None]
